FAERS Safety Report 6277121-4 (Version None)
Quarter: 2009Q3

REPORT INFORMATION
  Report Type: 
  Country: None (occurrence: None)
  Receive Date: 20090722
  Receipt Date: 20090113
  Transmission Date: 20100115
  Serious: No
  Sender: FDA-Public Use
  Company Number: US-BRISTOL-MYERS SQUIBB COMPANY-14468656

PATIENT
  Age: 78 Year
  Sex: Male
  Weight: 102 kg

DRUGS (13)
  1. COUMADIN [Suspect]
     Indication: CEREBROVASCULAR ACCIDENT PROPHYLAXIS
     Dosage: 1DF-7.5 MG TAKEN 4 DAYS PER WEEK AND 5 MG TAKEN 3 DAYS/WEEK.
  2. LISINOPRIL [Concomitant]
     Indication: HYPERTENSION
  3. PROAMATINE [Concomitant]
     Indication: HYPOTENSION
  4. ASCORBIC ACID [Concomitant]
  5. FOLIC ACID [Concomitant]
  6. OSTEO BI-FLEX [Concomitant]
     Dosage: 2 DF = 3000MG
  7. SAW PALMETTO [Concomitant]
  8. VITAMIN B-12 [Concomitant]
  9. VITAMIN B6 [Concomitant]
  10. MAGNESIUM [Concomitant]
  11. BETACAROTENE [Concomitant]
  12. LOVAZA [Concomitant]
  13. POTASSIUM CHLORIDE [Concomitant]

REACTIONS (1)
  - INTERNATIONAL NORMALISED RATIO FLUCTUATION [None]
